FAERS Safety Report 9048897 (Version 1)
Quarter: 2013Q1

REPORT INFORMATION
  Report Type: Spontaneous
  Country: US (occurrence: None)
  Receive Date: 20130116
  Receipt Date: 20130116
  Transmission Date: 20140127
  Serious: Yes (Hospitalization)
  Sender: FDA-Public Use
  Company Number: UTC-027763

PATIENT
  Age: 66 Year
  Sex: Male
  Weight: 118.1 kg

DRUGS (2)
  1. REMODULIN (5 MILLIGRAM/MILLILITERS, INJECTION FOR INFUSION) (TREPROSTINIL SODIUM) [Suspect]
     Indication: PULMONARY ARTERIAL HYPERTENSION
     Dosage: 59.04 UG/KG (0.041 UG/KG, 1 IN 1 MIN), SUBCUTANEOUS
     Route: 058
     Dates: start: 20090727
  2. TRBSYIO (SILDENAFIL CITRATE) [Concomitant]

REACTIONS (1)
  - Infusion site infection [None]
